FAERS Safety Report 5195836-6 (Version None)
Quarter: 2006Q4

REPORT INFORMATION
  Report Type: 
  Country: None (occurrence: None)
  Receive Date: 20061227
  Receipt Date: 20061211
  Transmission Date: 20070319
  Serious: Yes (Hospitalization, Congenital Anomaly)
  Sender: FDA-Public Use
  Company Number: US018789

PATIENT
  Age: 1 Day
  Sex: Male

DRUGS (2)
  1. ACTIQ [Suspect]
     Dosage: 9600 UG QD TRANSPLACENTAL  A FEW MONTHS
     Route: 064
     Dates: start: 20020701
  2. NORCO [Suspect]
     Dosage: 8 PER DAY

REACTIONS (6)
  - DRUG DEPENDENCE [None]
  - DRUG EXPOSURE DURING PREGNANCY [None]
  - DRUG WITHDRAWAL SYNDROME NEONATAL [None]
  - INSOMNIA [None]
  - PULMONARY MALFORMATION [None]
  - UNDERWEIGHT [None]
